FAERS Safety Report 4525966-0 (Version None)
Quarter: 2004Q4

REPORT INFORMATION
  Report Type: 
  Country: None (occurrence: None)
  Receive Date: 20041213
  Receipt Date: 20041213
  Transmission Date: 20050328
  Serious: Yes (Other)
  Sender: FDA-Public Use
  Company Number: None

PATIENT
  Age: 31 Year
  Sex: Female
  Weight: 41.7309 kg

DRUGS (1)
  1. LUPRON [Suspect]
     Indication: ENDOMETRIOSIS
     Dosage: ONCE MONTH INTRAMUSCULAR
     Route: 030
     Dates: start: 20040712, end: 20041119

REACTIONS (4)
  - ALOPECIA [None]
  - BONE DISORDER [None]
  - HEADACHE [None]
  - TOOTH FRACTURE [None]
